FAERS Safety Report 9364066 (Version 2)
Quarter: 2013Q3

REPORT INFORMATION
  Report Type: Spontaneous
  Country: US (occurrence: US)
  Receive Date: 20130624
  Receipt Date: 20130730
  Transmission Date: 20140515
  Serious: Yes (Hospitalization)
  Sender: FDA-Public Use
  Company Number: US-009507513-1306USA009414

PATIENT
  Age: 19 Year
  Sex: Male

DRUGS (2)
  1. SINGULAIR [Suspect]
     Indication: SEASONAL ALLERGY
     Dosage: 1 DF, QPM, 5 MG 1 STANDARD PACKAGE BOTTLE OF 30
     Route: 048
     Dates: start: 2003, end: 200603
  2. ZYRTEC [Concomitant]
     Dosage: UNK

REACTIONS (7)
  - Liver injury [Recovered/Resolved]
  - Chromaturia [Recovered/Resolved]
  - Faeces pale [Recovered/Resolved]
  - Hepatic function abnormal [Recovered/Resolved]
  - Blood bilirubin abnormal [Recovered/Resolved]
  - Depression [Recovered/Resolved]
  - Anxiety [Recovered/Resolved]
